FAERS Safety Report 9407856 (Version 2)
Quarter: 2013Q3

REPORT INFORMATION
  Report Type: Spontaneous
  Country: US (occurrence: None)
  Receive Date: 20130429
  Receipt Date: 20130815
  Transmission Date: 20140515
  Serious: Yes (Hospitalization, Other)
  Sender: FDA-Public Use
  Company Number: ADR-2013-00231

PATIENT
  Sex: Male

DRUGS (2)
  1. BACLOFEN INTRATHECAL [Suspect]
     Indication: MUSCLE SPASTICITY
  2. UNKNOWN PAIN MEDICATION [Concomitant]

REACTIONS (5)
  - Neuralgia [None]
  - Therapeutic response decreased [None]
  - Neuralgia [None]
  - Spinal cord injury [None]
  - Central pain syndrome [None]
